FAERS Safety Report 23752855 (Version 1)
Quarter: 2024Q2

REPORT INFORMATION
  Report Type: Spontaneous
  Country: US (occurrence: US)
  Receive Date: 20240417
  Receipt Date: 20240417
  Transmission Date: 20240716
  Serious: Yes (Hospitalization, Other)
  Sender: FDA-Public Use
  Company Number: US-FreseniusKabi-FK202406210

PATIENT
  Age: 29 Year
  Sex: Male

DRUGS (8)
  1. ETOPOSIDE [Suspect]
     Active Substance: ETOPOSIDE
     Indication: Primary mediastinal large B-cell lymphoma
     Dosage: DA R-EPOCH REGIMEN?SECOND CYCLE OF DA-R-EPOCH (20PERCENT INCREASE IN ETOPOSIDE, DOXORUBICIN, AND CYC
  2. DOXORUBICIN [Suspect]
     Active Substance: DOXORUBICIN
     Indication: Primary mediastinal large B-cell lymphoma
     Dosage: DA R-EPOCH REGIMEN?SECOND CYCLE OF DA-R-EPOCH (20PERCENT INCREASE IN ETOPOSIDE, DOXORUBICIN, AND CYC
  3. PEGFILGRASTIM [Suspect]
     Active Substance: PEGFILGRASTIM
     Indication: Primary mediastinal large B-cell lymphoma
     Dosage: SECOND CYCLE OF DA-R-EPOCH (20PERCENT INCREASE IN ETOPOSIDE, DOXORUBICIN, AND CYCLOPHOSPHAMIDE) WITH
  4. PREDNISONE [Suspect]
     Active Substance: PREDNISONE
     Indication: Primary mediastinal large B-cell lymphoma
     Dosage: DA R-EPOCH REGIMEN
  5. VINCRISTINE SULFATE [Suspect]
     Active Substance: VINCRISTINE SULFATE
     Indication: Primary mediastinal large B-cell lymphoma
     Dosage: DA R-EPOCH REGIMEN
  6. CYCLOPHOSPHAMIDE [Suspect]
     Active Substance: CYCLOPHOSPHAMIDE
     Indication: Primary mediastinal large B-cell lymphoma
     Dosage: DA R-EPOCH REGIMEN?SECOND CYCLE OF DA-R-EPOCH (20PERCENT INCREASE IN ETOPOSIDE, DOXORUBICIN, AND CYC
  7. RITUXIMAB [Suspect]
     Active Substance: RITUXIMAB
     Indication: Primary mediastinal large B-cell lymphoma
     Dosage: DA R-EPOCH REGIMEN
  8. LEVOFLOXACIN [Concomitant]
     Active Substance: LEVOFLOXACIN
     Indication: Prophylaxis

REACTIONS (2)
  - Bone marrow necrosis [Recovered/Resolved]
  - Fat embolism syndrome [Recovered/Resolved]
